FAERS Safety Report 13134269 (Version 3)
Quarter: 2017Q2

REPORT INFORMATION
  Report Type: Spontaneous
  Country: US (occurrence: US)
  Receive Date: 20170120
  Receipt Date: 20170417
  Transmission Date: 20170830
  Serious: No
  Sender: FDA-Public Use
  Company Number: US-PFIZER INC-2017022474

PATIENT
  Age: 57 Year
  Sex: Female

DRUGS (5)
  1. BUPROPION HCL [Concomitant]
     Active Substance: BUPROPION HYDROCHLORIDE
     Dosage: UNK
  2. CITALOPRAM HYDROBROMIDE. [Concomitant]
     Active Substance: CITALOPRAM HYDROBROMIDE
     Dosage: UNK
  3. IBRANCE [Suspect]
     Active Substance: PALBOCICLIB
     Dosage: 100 MG, CYCLIC (21 CONSECUTIVE DAYS ON THEN 7 DAYS OFF REPEAT EVERY 28 DAYS)
  4. ACETAMINOPHEN W/HYDROCODONE [Concomitant]
     Active Substance: ACETAMINOPHEN\HYDROCODONE
     Dosage: UNK
  5. IBRANCE [Suspect]
     Active Substance: PALBOCICLIB
     Indication: LIP AND/OR ORAL CAVITY CANCER
     Dosage: 125 MG, CYCLIC (21 CONSECUTIVE DAYS ON THEN 7 DAYS OFF REPEAT EVERY 28 DAYS)
     Route: 048
     Dates: end: 20170113

REACTIONS (3)
  - Depression [Unknown]
  - Product use in unapproved indication [Unknown]
  - White blood cell count decreased [Unknown]
